FAERS Safety Report 8055282-4 (Version None)
Quarter: 2012Q1

REPORT INFORMATION
  Report Type: 
  Country: None (occurrence: None)
  Receive Date: 20120119
  Receipt Date: 20120109
  Transmission Date: 20120608
  Serious: Yes (Hospitalization)
  Sender: FDA-Public Use
  Company Number: US-BAYER-2011-038338

PATIENT
  Age: 22 Year
  Sex: Female
  Weight: 49.887 kg

DRUGS (11)
  1. YASMIN [Suspect]
     Indication: ORAL CONTRACEPTION
     Dosage: UNK
     Dates: start: 20060101, end: 20070101
  2. TRAMADOL HCL [Concomitant]
  3. PROPOXYPHENE HCL AND ACETAMINOPHEN [Concomitant]
  4. ORTHO TRI-CYCLEN LO [Concomitant]
     Dosage: UNK
     Dates: start: 20070511, end: 20080211
  5. TIZANIDINE HCL [Concomitant]
  6. ALPRAZOLAM [Concomitant]
  7. PANTOPRAZOLE [Concomitant]
  8. YAZ [Suspect]
     Indication: ORAL CONTRACEPTION
     Dosage: UNK
     Dates: start: 20060101, end: 20070101
  9. HYDROCODONE BITARTRATE AND ACETAMINOPHEN [Concomitant]
  10. SEROQUEL [Concomitant]
  11. DICYCLOMINE [Concomitant]

REACTIONS (9)
  - PAIN [None]
  - INJURY [None]
  - CHOLECYSTITIS CHRONIC [None]
  - CHOLELITHIASIS [None]
  - ANXIETY [None]
  - FEAR [None]
  - DEEP VEIN THROMBOSIS [None]
  - ANHEDONIA [None]
  - QUALITY OF LIFE DECREASED [None]
